FAERS Safety Report 7609012-8 (Version None)
Quarter: 2011Q3

REPORT INFORMATION
  Report Type: 
  Country: None (occurrence: None)
  Receive Date: 20110713
  Receipt Date: 20110713
  Transmission Date: 20111222
  Serious: Yes (Life-Threatening, Other)
  Sender: FDA-Public Use
  Company Number: None

PATIENT
  Age: 45 Year
  Sex: Female
  Weight: 65.7716 kg

DRUGS (1)
  1. FLEXERIL [Suspect]
     Indication: PAIN IN JAW
     Dosage: ONE PILL EVERY 12 HOURS PO
     Route: 048
     Dates: start: 20020707, end: 20020708

REACTIONS (4)
  - EMOTIONAL DISORDER [None]
  - HALLUCINATION, VISUAL [None]
  - FATIGUE [None]
  - SELF-INJURIOUS IDEATION [None]
